FAERS Safety Report 7119341-2 (Version None)
Quarter: 2010Q4

REPORT INFORMATION
  Report Type: 
  Country: None (occurrence: None)
  Receive Date: 20101123
  Receipt Date: 20101113
  Transmission Date: 20110411
  Serious: Yes (Hospitalization)
  Sender: FDA-Public Use
  Company Number: US-ABBOTT-10P-163-0685560-00

PATIENT
  Age: 2 Year
  Sex: Female

DRUGS (2)
  1. SIBUTRAMINE HYDROCHLORIDE MONOHYDRATE [Suspect]
     Indication: WEIGHT DECREASED
  2. MEIZITANG [Suspect]
     Indication: WEIGHT DECREASED

REACTIONS (5)
  - KETOACIDOSIS [None]
  - LACTIC ACIDOSIS [None]
  - TACHYCARDIA [None]
  - TREMOR [None]
  - VOMITING [None]
